FAERS Safety Report 9796874 (Version 1)
Quarter: 2014Q1

REPORT INFORMATION
  Report Type: Spontaneous
  Country: FR (occurrence: FR)
  Receive Date: 20140103
  Receipt Date: 20140103
  Transmission Date: 20141002
  Serious: Yes (Hospitalization)
  Sender: FDA-Public Use
  Company Number: PHHY2013FR154474

PATIENT
  Age: 72 Year
  Sex: Male

DRUGS (4)
  1. CEFUROXIME SANDOZ [Suspect]
     Indication: NASOPHARYNGITIS
     Dosage: 250 MG, BID
     Route: 048
     Dates: start: 20100223, end: 20100302
  2. PREDNISOLONE SANDOZ [Suspect]
     Indication: NASOPHARYNGITIS
     Dosage: 20 MG, QD
     Route: 048
     Dates: start: 20100303, end: 20100303
  3. PYOSTACINE [Suspect]
     Indication: NASOPHARYNGITIS
     Dosage: 4 DF, QD
     Route: 048
     Dates: start: 20100303, end: 20100303
  4. BRONCHOKOD [Suspect]
     Indication: NASOPHARYNGITIS
     Dosage: 3 DF, QD
     Route: 048
     Dates: start: 20100303, end: 20100303

REACTIONS (2)
  - Rash [Recovered/Resolved]
  - Pruritus [Recovered/Resolved]
